FAERS Safety Report 24011193 (Version 1)
Quarter: 2024Q2

REPORT INFORMATION
  Report Type: Spontaneous
  Country: US (occurrence: None)
  Receive Date: 20240625
  Receipt Date: 20240625
  Transmission Date: 20240716
  Serious: Yes (Other)
  Sender: FDA-Public Use
  Company Number: None

PATIENT
  Age: 72 Year
  Sex: Male

DRUGS (1)
  1. IBRANCE [Suspect]
     Active Substance: PALBOCICLIB
     Indication: Drug therapy
     Dosage: FREQUENCY : AS DIRECTED;?
     Route: 048

REACTIONS (3)
  - Fatigue [None]
  - Decreased appetite [None]
  - Pain [None]
